FAERS Safety Report 23794877 (Version 1)
Quarter: 2024Q2

REPORT INFORMATION
  Report Type: Spontaneous
  Country: IE (occurrence: IE)
  Receive Date: 20240429
  Receipt Date: 20240429
  Transmission Date: 20240716
  Serious: Yes (Hospitalization)
  Sender: FDA-Public Use
  Company Number: IE-BAYER-2024A025417

PATIENT
  Age: 90 Year
  Sex: Male

DRUGS (3)
  1. NUBEQA [Suspect]
     Active Substance: DAROLUTAMIDE
     Indication: Prostate cancer
     Dosage: UNK
  2. GENTAMICIN [Concomitant]
     Active Substance: GENTAMICIN
     Dosage: 360 MG
     Route: 042
  3. TRAZODONE HYDROCHLORIDE [Concomitant]
     Active Substance: TRAZODONE HYDROCHLORIDE
     Dosage: UNK

REACTIONS (4)
  - Liver function test abnormal [Recovering/Resolving]
  - Hypercalcaemia [Recovered/Resolved]
  - General physical health deterioration [Unknown]
  - Osteosclerosis [Unknown]

NARRATIVE: CASE EVENT DATE: 20230420
